FAERS Safety Report 21683749 (Version 1)
Quarter: 2022Q4

REPORT INFORMATION
  Report Type: Spontaneous
  Country: CA (occurrence: CA)
  Receive Date: 20221205
  Receipt Date: 20221205
  Transmission Date: 20230113
  Serious: Yes (Hospitalization)
  Sender: FDA-Public Use
  Company Number: CA-TEVA-2022-CA-2832590

PATIENT
  Age: 9 Decade
  Sex: Male

DRUGS (7)
  1. DOXORUBICIN [Suspect]
     Active Substance: DOXORUBICIN
     Indication: Diffuse large B-cell lymphoma stage IV
     Dosage: DOXORUBICIN 25 MG/M2 IN 6 CYCLES, EACH SEPARATED BY 3 WEEKS AS A PART OF R-MINI-CHOP CHEMOTHERAPY
     Route: 065
  2. PREDNISOLONE [Suspect]
     Active Substance: PREDNISOLONE
     Indication: Diffuse large B-cell lymphoma stage IV
     Dosage: PREDNISOLONE 40 MG/M2 IN 6 CYCLES, EACH SEPARATED BY 3 WEEKS AS A PART OF R-MINI-CHOP CHEMOTHERAPY
     Route: 065
  3. VINCRISTINE [Suspect]
     Active Substance: VINCRISTINE
     Indication: Diffuse large B-cell lymphoma stage IV
     Dosage: VINCRISTINE 1 MG IN 6 CYCLES, EACH SEPARATED BY 3 WEEKS AS A PART OF R-MINI-CHOP CHEMOTHERAPY
     Route: 065
  4. DEXAMETHASONE [Suspect]
     Active Substance: DEXAMETHASONE
     Indication: Product used for unknown indication
     Route: 065
  5. CYCLOPHOSPHAMIDE [Suspect]
     Active Substance: CYCLOPHOSPHAMIDE
     Indication: Diffuse large B-cell lymphoma stage IV
     Dosage: CYCLOPHOSPHAMIDE 400 MG/M2 IN 6 CYCLES, EACH SEPARATED BY 3 WEEKS AS A PART OF R-MINI-CHOP CHEMOT...
     Route: 065
  6. RITUXIMAB [Suspect]
     Active Substance: RITUXIMAB
     Indication: Diffuse large B-cell lymphoma stage IV
     Dosage: RITUXIMAB 375 MG/M2 IN 6 CYCLES, EACH SEPARATED BY 3 WEEKS AS A PART OF R-MINI-CHOP CHEMOTHERAPY
     Route: 065
  7. FILGRASTIM [Suspect]
     Active Substance: FILGRASTIM
     Indication: Prophylaxis
     Route: 065

REACTIONS (3)
  - Candida infection [Unknown]
  - Diarrhoea [Unknown]
  - Pleural effusion [Unknown]
